FAERS Safety Report 7382120-5 (Version None)
Quarter: 2011Q1

REPORT INFORMATION
  Report Type: 
  Country: None (occurrence: None)
  Receive Date: 20110329
  Receipt Date: 20110317
  Transmission Date: 20110831
  Serious: Yes (Hospitalization, Other)
  Sender: FDA-Public Use
  Company Number: PHEH2006US12162

PATIENT
  Sex: Female
  Weight: 65.306 kg

DRUGS (56)
  1. FLAGYL [Concomitant]
  2. VOLTAREN                           /00372303/ [Concomitant]
  3. REFRESH [Concomitant]
  4. CELEBREX [Concomitant]
  5. LEVAQUIN [Concomitant]
     Dosage: UNK
  6. OXYCONTIN [Concomitant]
  7. PRANDIN ^KUHN^ [Concomitant]
  8. VIROPTIC [Concomitant]
  9. DEPOTHAL [Concomitant]
  10. ASPIRIN [Concomitant]
  11. AREDIA [Suspect]
     Indication: BONE DENSITY DECREASED
     Dosage: 90 MG, QMO
  12. DECADRON [Concomitant]
     Dosage: UNK
  13. CLINDAMYCIN [Concomitant]
     Dosage: UNK
  14. OXYCODONE [Concomitant]
     Dosage: UNK
  15. INSULIN [Concomitant]
  16. PROCRIT                            /00909301/ [Concomitant]
     Dosage: UNK
  17. PREDNISONE [Concomitant]
  18. HUMALOG [Concomitant]
  19. FUROSEMIDE [Concomitant]
  20. HYPOTEARS                               /SCH/ [Concomitant]
  21. POTASSIUM [Concomitant]
  22. GLYBURIDE [Concomitant]
  23. TEQUIN [Concomitant]
  24. TRICOR [Concomitant]
  25. CIPRO [Concomitant]
     Dosage: UNK
  26. VANCOMYCIN [Concomitant]
     Dosage: UNK
  27. METRONIDAZOLE [Concomitant]
     Dosage: UNK
  28. TRAZODONE [Concomitant]
  29. PERCOCET [Concomitant]
     Dosage: UNK
  30. NEURONTIN [Concomitant]
     Dosage: UNK
  31. DYAZIDE [Concomitant]
  32. SULFACETAMIDE SODIUM [Concomitant]
  33. MICRONASE [Concomitant]
  34. ASPIRIN [Concomitant]
  35. BENADRYL [Concomitant]
  36. NORVASC [Concomitant]
  37. AVANDIA [Concomitant]
     Dosage: UNK
  38. LORAZEPAM [Concomitant]
     Dosage: UNK
  39. PIRAMIDON [Concomitant]
     Dosage: UNK
  40. AMBIEN [Concomitant]
     Dosage: UNK
  41. FERROUS SULFATE TAB [Concomitant]
  42. QUININE SULFATE [Concomitant]
  43. VELCADE [Concomitant]
     Dosage: UNK
  44. K-DUR [Concomitant]
  45. SYNTHROID [Concomitant]
     Dosage: UNK
  46. ZOFRAN [Concomitant]
  47. LANTUS [Concomitant]
  48. FOLIC ACID [Concomitant]
  49. ZOMETA [Suspect]
  50. ATIVAN [Concomitant]
     Dosage: UNK
  51. LASIX [Concomitant]
     Dosage: UNK
  52. VALIUM [Concomitant]
  53. PERIDEX [Concomitant]
  54. CYCLOGYL [Concomitant]
  55. HOMATROPINE EYE DROPS [Concomitant]
  56. COLACE [Concomitant]

REACTIONS (68)
  - ANXIETY [None]
  - PHYSICAL DISABILITY [None]
  - SWELLING FACE [None]
  - PURPURA [None]
  - ANAEMIA [None]
  - OSTEOCHONDROSIS [None]
  - HYPERGLYCAEMIA [None]
  - ORAL CANDIDIASIS [None]
  - VITAMIN K DEFICIENCY [None]
  - SUPERINFECTION BACTERIAL [None]
  - IRITIS [None]
  - PERIPHERAL VASCULAR DISORDER [None]
  - DEPRESSED MOOD [None]
  - BREAST MASS [None]
  - GINGIVAL EROSION [None]
  - IMPAIRED HEALING [None]
  - OSTEONECROSIS [None]
  - HEPATIC CIRRHOSIS [None]
  - PANCYTOPENIA [None]
  - ARTHRALGIA [None]
  - CHEST PAIN [None]
  - NEPHROPATHY [None]
  - WOUND DEHISCENCE [None]
  - EXCESSIVE GRANULATION TISSUE [None]
  - ORAL CAVITY FISTULA [None]
  - SENILE OSTEOPOROSIS [None]
  - NEUROPATHY PERIPHERAL [None]
  - PETECHIAE [None]
  - FALL [None]
  - HERPES ZOSTER [None]
  - ARTERIOSCLEROSIS [None]
  - CELLULITIS [None]
  - COLITIS ULCERATIVE [None]
  - ROTATOR CUFF SYNDROME [None]
  - HYPOTHYROIDISM [None]
  - SPLENOMEGALY [None]
  - KERATITIS [None]
  - JOINT SWELLING [None]
  - FISTULA [None]
  - THROMBOCYTOPENIA [None]
  - CATHETERISATION CARDIAC [None]
  - ISCHAEMIA [None]
  - SCOLIOSIS [None]
  - GRAFT VERSUS HOST DISEASE [None]
  - SYNCOPE [None]
  - INJURY [None]
  - PAIN [None]
  - OSTEOMYELITIS [None]
  - HAEMOGLOBIN DECREASED [None]
  - HAEMATOCRIT DECREASED [None]
  - LUMBAR SPINAL STENOSIS [None]
  - GALLBLADDER ENLARGEMENT [None]
  - ONYCHOMYCOSIS [None]
  - ULCER [None]
  - CATARACT [None]
  - HEPATOMEGALY [None]
  - CEREBROVASCULAR ACCIDENT [None]
  - PORTAL HYPERTENSION [None]
  - CHOLELITHIASIS [None]
  - EYE INFECTION VIRAL [None]
  - UVEITIS [None]
  - SOFT TISSUE INFLAMMATION [None]
  - OSTEONECROSIS OF JAW [None]
  - BONE DISORDER [None]
  - RENAL IMPAIRMENT [None]
  - PAIN IN EXTREMITY [None]
  - GASTROOESOPHAGEAL REFLUX DISEASE [None]
  - PARAKERATOSIS [None]
